FAERS Safety Report 18891163 (Version 2)
Quarter: 2021Q2

REPORT INFORMATION
  Report Type: Report from Study
  Country: None (occurrence: US)
  Receive Date: 20210215
  Receipt Date: 20210511
  Transmission Date: 20210717
  Serious: Yes (Hospitalization, Other)
  Sender: FDA-Public Use
  Company Number: US-ABBVIE-21K-163-3715737-00

PATIENT
  Sex: Female

DRUGS (4)
  1. HUMIRA [Suspect]
     Active Substance: ADALIMUMAB
     Dosage: DAY 1
     Route: 058
     Dates: start: 20210105, end: 20210105
  2. HUMIRA [Suspect]
     Active Substance: ADALIMUMAB
     Dosage: DAY 15
     Route: 058
     Dates: start: 20210120, end: 20210120
  3. HUMIRA [Suspect]
     Active Substance: ADALIMUMAB
     Route: 058
     Dates: start: 20210204
  4. HUMIRA [Suspect]
     Active Substance: ADALIMUMAB
     Indication: CROHN^S DISEASE
     Route: 058
     Dates: start: 201801, end: 202007

REACTIONS (13)
  - Decreased appetite [Recovered/Resolved]
  - Gastrointestinal scarring [Recovering/Resolving]
  - Therapeutic product effect incomplete [Unknown]
  - Scar [Unknown]
  - Seasonal allergy [Unknown]
  - Anxiety [Unknown]
  - Gastrointestinal disorder [Recovering/Resolving]
  - Insomnia [Unknown]
  - Abdominal pain [Recovering/Resolving]
  - Fistula [Unknown]
  - Stress at work [Unknown]
  - Colon injury [Unknown]
  - Diarrhoea [Recovering/Resolving]

NARRATIVE: CASE EVENT DATE: 2021
